FAERS Safety Report 24147280 (Version 1)
Quarter: 2024Q3

REPORT INFORMATION
  Report Type: Spontaneous
  Country: US (occurrence: None)
  Receive Date: 20240729
  Receipt Date: 20240729
  Transmission Date: 20241016
  Serious: Yes (Hospitalization)
  Sender: Public
  Company Number: None

PATIENT
  Age: 74 Year
  Sex: Male

DRUGS (1)
  1. NUCALA [Suspect]
     Active Substance: MEPOLIZUMAB
     Indication: Asthma
     Dosage: 100MG EVERY 28 DAYS SUBCUTANEOUS?
     Route: 058
     Dates: start: 202407

REACTIONS (3)
  - Pneumonia [None]
  - Dehydration [None]
  - Hypersensitivity [None]

NARRATIVE: CASE EVENT DATE: 20240704
